FAERS Safety Report 9879132 (Version 1)
Quarter: 2014Q1

REPORT INFORMATION
  Report Type: Spontaneous
  Country: US (occurrence: US)
  Receive Date: 20140206
  Receipt Date: 20140206
  Transmission Date: 20141002
  Serious: No
  Sender: FDA-Public Use
  Company Number: US-ALLERGAN-1313714US

PATIENT
  Sex: Female

DRUGS (3)
  1. BOTOX [Suspect]
     Indication: SKIN WRINKLING
     Dosage: UNK, SINGLE
     Route: 030
     Dates: start: 20130713, end: 20130713
  2. BOTOX [Suspect]
     Indication: SKIN WRINKLING
  3. JUVEDERM [Suspect]
     Indication: SKIN WRINKLING

REACTIONS (9)
  - Palpitations [Unknown]
  - Panic attack [Unknown]
  - Contusion [Unknown]
  - Lip swelling [Unknown]
  - Facial paresis [Unknown]
  - Nausea [Unknown]
  - Dyskinesia [Unknown]
  - Burning sensation [Unknown]
  - Feeling abnormal [Unknown]
